FAERS Safety Report 5331286-7 (Version None)
Quarter: 2007Q2

REPORT INFORMATION
  Report Type: 
  Country: None (occurrence: None)
  Receive Date: 20070306
  Receipt Date: 20060329
  Transmission Date: 20071010
  Serious: Yes (Hospitalization)
  Sender: FDA-Public Use
  Company Number: A03200601902

PATIENT
  Age: 75 Year
  Sex: Female
  Weight: 77.1 kg

DRUGS (4)
  1. PLAVIX [Suspect]
     Indication: POST PROCEDURAL STROKE
     Dosage: 75 MG QD - ORAL
     Route: 048
     Dates: start: 20050101
  2. LISINOPRIL [Concomitant]
  3. OXYCODONE + ACETAMINOPHEN [Concomitant]
  4. ACETAMINOPHEN [Concomitant]

REACTIONS (2)
  - BACK PAIN [None]
  - RASH [None]
